FAERS Safety Report 7844813-2 (Version None)
Quarter: 2011Q4

REPORT INFORMATION
  Report Type: 
  Country: None (occurrence: None)
  Receive Date: 20111025
  Receipt Date: 20110929
  Transmission Date: 20120403
  Serious: Yes (Hospitalization)
  Sender: FDA-Public Use
  Company Number: US-GLAXOSMITHKLINE-A0946680A

PATIENT
  Age: 36 Year
  Sex: Female
  Weight: 99.8 kg

DRUGS (1)
  1. FLOLAN [Suspect]
     Indication: PULMONARY ARTERIAL HYPERTENSION
     Dosage: 21NGKM UNKNOWN
     Route: 042
     Dates: start: 20110328

REACTIONS (2)
  - HAEMORRHAGE [None]
  - SUBDURAL HAEMATOMA [None]
